FAERS Safety Report 11462246 (Version 1)
Quarter: 2015Q3

REPORT INFORMATION
  Report Type: Spontaneous
  Country: US (occurrence: US)
  Receive Date: 20150831
  Receipt Date: 20150831
  Transmission Date: 20151125
  Serious: No
  Sender: FDA-Public Use
  Company Number: US-ELI_LILLY_AND_COMPANY-US201010005636

PATIENT
  Age: 56 Year
  Sex: Female

DRUGS (17)
  1. ABILIFY [Concomitant]
     Active Substance: ARIPIPRAZOLE
     Dosage: 5 MG, DAILY (1/D)
     Dates: start: 20100925, end: 20100928
  2. ABILIFY [Concomitant]
     Active Substance: ARIPIPRAZOLE
     Dosage: UNK, DAILY (1/D)
     Dates: start: 20100929, end: 20101007
  3. CYMBALTA [Suspect]
     Active Substance: DULOXETINE HYDROCHLORIDE
     Indication: ANXIETY
     Dosage: 120 MG, UNKNOWN
     Dates: start: 201008, end: 201009
  4. CYMBALTA [Suspect]
     Active Substance: DULOXETINE HYDROCHLORIDE
     Dosage: 120 MG, EACH MORNING
     Dates: start: 20101012
  5. ABILIFY [Concomitant]
     Active Substance: ARIPIPRAZOLE
     Dosage: 2 MG, DAILY (1/D)
     Dates: start: 20100921, end: 20100924
  6. ABILIFY [Concomitant]
     Active Substance: ARIPIPRAZOLE
     Dosage: 5 MG, EACH EVENING
     Dates: start: 20101008
  7. CYMBALTA [Suspect]
     Active Substance: DULOXETINE HYDROCHLORIDE
     Dosage: 60 MG, UNKNOWN
     Dates: start: 201009, end: 201009
  8. CYMBALTA [Suspect]
     Active Substance: DULOXETINE HYDROCHLORIDE
     Dosage: 60 MG, UNKNOWN
     Dates: start: 20100921, end: 20101007
  9. CYMBALTA [Suspect]
     Active Substance: DULOXETINE HYDROCHLORIDE
     Dosage: 90 MG, DAILY (1/D)
     Dates: start: 20101008, end: 20101011
  10. DEPAKOTE [Concomitant]
     Active Substance: DIVALPROEX SODIUM
     Dosage: 250 MG, EACH EVENING
     Dates: start: 20100921, end: 20100927
  11. TRILEPTAL [Concomitant]
     Active Substance: OXCARBAZEPINE
     Dosage: 150 MG, UNKNOWN
     Dates: start: 20101008
  12. REMERON [Concomitant]
     Active Substance: MIRTAZAPINE
     Dosage: UNK, EACH EVENING
     Dates: start: 20100921
  13. TRAZODONE [Concomitant]
     Active Substance: TRAZODONE HYDROCHLORIDE
     Dosage: 400 MG, UNKNOWN
     Dates: start: 20100921
  14. DEPAKOTE [Concomitant]
     Active Substance: DIVALPROEX SODIUM
     Dosage: UNK, 2/D
     Dates: start: 20100928, end: 20101008
  15. REQUIP [Concomitant]
     Active Substance: ROPINIROLE HYDROCHLORIDE
     Dosage: 0.5 MG, UNKNOWN
     Dates: start: 20100921
  16. ZYPREXA [Concomitant]
     Active Substance: OLANZAPINE
     Dosage: 20 MG, UNKNOWN
     Dates: start: 20101008
  17. LAMICTAL [Concomitant]
     Active Substance: LAMOTRIGINE
     Dosage: UNK, UNKNOWN

REACTIONS (1)
  - Cognitive disorder [Unknown]
